FAERS Safety Report 11719856 (Version 1)
Quarter: 2015Q4

REPORT INFORMATION
  Report Type: Report from Study
  Country: AU (occurrence: AU)
  Receive Date: 20151110
  Receipt Date: 20151110
  Transmission Date: 20160304
  Serious: Yes (Other)
  Sender: FDA-Public Use
  Company Number: AU-ROCHE-1656689

PATIENT

DRUGS (1)
  1. VEMURAFENIB [Suspect]
     Active Substance: VEMURAFENIB
     Indication: METASTATIC MALIGNANT MELANOMA
     Route: 065

REACTIONS (20)
  - Hyperkeratosis [Unknown]
  - Photosensitivity reaction [Unknown]
  - Seborrhoeic keratosis [Unknown]
  - Eczema [Unknown]
  - Haemangioma [Unknown]
  - Dermatitis acneiform [Unknown]
  - Actinic keratosis [Unknown]
  - Folliculitis [Unknown]
  - Palmoplantar keratoderma [Unknown]
  - Squamous cell carcinoma of skin [Unknown]
  - Skin papilloma [Unknown]
  - Hair colour changes [Unknown]
  - Hair texture abnormal [Unknown]
  - Basal cell carcinoma [Unknown]
  - Transient acantholytic dermatosis [Unknown]
  - Keratosis pilaris [Unknown]
  - Vitiligo [Unknown]
  - Alopecia [Unknown]
  - Inflammation [Unknown]
  - Panniculitis [Unknown]
